FAERS Safety Report 5091561-0 (Version None)
Quarter: 2006Q3

REPORT INFORMATION
  Report Type: 
  Country: None (occurrence: None)
  Receive Date: 20060824
  Receipt Date: 20060814
  Transmission Date: 20061208
  Serious: Yes (Other)
  Sender: FDA-Public Use
  Company Number: 2006099512

PATIENT
  Sex: Male

DRUGS (4)
  1. CARDURA XL [Suspect]
     Indication: DRUG USE FOR UNKNOWN INDICATION
     Dosage: ORAL
     Route: 048
     Dates: start: 20060801
  2. ANTIHYPERTENSIVES [Concomitant]
  3. ANTIDEPRESSANTS [Concomitant]
  4. DRUG, UNSPECIFIED [Concomitant]

REACTIONS (7)
  - ARTHRALGIA [None]
  - CONFUSIONAL STATE [None]
  - DYSARTHRIA [None]
  - DYSPNOEA [None]
  - HEADACHE [None]
  - MUSCLE TIGHTNESS [None]
  - MYALGIA [None]
